FAERS Safety Report 6275284-8 (Version None)
Quarter: 2009Q3

REPORT INFORMATION
  Report Type: 
  Country: None (occurrence: None)
  Receive Date: 20090721
  Receipt Date: 20090713
  Transmission Date: 20100115
  Serious: Yes (Other)
  Sender: FDA-Public Use
  Company Number: A0794989A

PATIENT
  Sex: Male

DRUGS (1)
  1. AVANDIA [Suspect]
     Route: 048

REACTIONS (6)
  - ADVERSE EVENT [None]
  - CARDIAC DISORDER [None]
  - CARDIAC FAILURE CONGESTIVE [None]
  - DISABILITY [None]
  - HYPERTENSION [None]
  - RENAL DISORDER [None]
